FAERS Safety Report 10709639 (Version 2)
Quarter: 2015Q2

REPORT INFORMATION
  Report Type: Report from Study
  Country: JP (occurrence: JP)
  Receive Date: 20150114
  Receipt Date: 20150415
  Transmission Date: 20150821
  Serious: Yes (Other)
  Sender: FDA-Public Use
  Company Number: PHHY2014JP038146

PATIENT
  Age: 43 Year
  Sex: Female

DRUGS (28)
  1. CLOZARIL [Suspect]
     Active Substance: CLOZAPINE
     Dosage: 25 MG, UNK
     Route: 048
     Dates: start: 20130206, end: 20130208
  2. CLOZARIL [Suspect]
     Active Substance: CLOZAPINE
     Dosage: 50 MG, UNK
     Route: 048
     Dates: start: 20130209, end: 20130211
  3. CLOZARIL [Suspect]
     Active Substance: CLOZAPINE
     Dosage: 200 MG, UNK
     Route: 048
     Dates: start: 20130225, end: 20130301
  4. LIMAS [Suspect]
     Active Substance: LITHIUM CARBONATE
     Indication: SCHIZOPHRENIA, CATATONIC TYPE
     Dosage: 250 MG, UNK
     Route: 048
     Dates: start: 20130205, end: 20130304
  5. QUETIAPINE [Concomitant]
     Active Substance: QUETIAPINE
     Indication: SCHIZOPHRENIA, CATATONIC TYPE
     Dosage: 400 MG, UNK
     Route: 048
     Dates: start: 20130207, end: 20130314
  6. CLOZARIL [Suspect]
     Active Substance: CLOZAPINE
     Dosage: 275 MG, UNK
     Route: 048
     Dates: start: 20130405, end: 20130518
  7. LIMAS [Suspect]
     Active Substance: LITHIUM CARBONATE
     Dosage: 300 MG, UNK
     Route: 048
     Dates: start: 20130305
  8. AMPLICTIL//CHLORPROMAZINE HYDROCHLORIDE [Concomitant]
     Indication: SCHIZOPHRENIA, CATATONIC TYPE
     Dosage: 25 MG, UNK
     Route: 048
     Dates: start: 20130207, end: 20130218
  9. METLIGINE [Concomitant]
     Active Substance: MIDODRINE HYDROCHLORIDE
     Indication: SCHIZOPHRENIA, CATATONIC TYPE
     Dosage: 8 MG, UNK
     Route: 048
     Dates: end: 20130216
  10. UBRETID [Concomitant]
     Active Substance: DISTIGMINE BROMIDE
     Indication: SCHIZOPHRENIA, CATATONIC TYPE
     Dosage: 5 MG, UNK
     Route: 048
     Dates: end: 20130216
  11. CLOZARIL [Suspect]
     Active Substance: CLOZAPINE
     Dosage: 300 MG, UNK
     Route: 048
     Dates: start: 20130322, end: 20130404
  12. CLOZARIL [Suspect]
     Active Substance: CLOZAPINE
     Dosage: 325 MG, UNK
     Route: 048
     Dates: start: 20130703, end: 20130717
  13. CLOZARIL [Suspect]
     Active Substance: CLOZAPINE
     Dosage: 150 MG, UNK
     Route: 048
     Dates: start: 20130219, end: 20130221
  14. CLOZARIL [Suspect]
     Active Substance: CLOZAPINE
     Dosage: 275 MG, UNK
     Route: 048
     Dates: start: 20130315, end: 20130321
  15. CLOZARIL [Suspect]
     Active Substance: CLOZAPINE
     Dosage: 350 MG, UNK
     Route: 048
     Dates: start: 20130718
  16. LONASEN [Concomitant]
     Active Substance: BLONANSERIN
     Indication: SCHIZOPHRENIA, CATATONIC TYPE
     Dosage: 12 MG, UNK
     Route: 048
     Dates: start: 20130207, end: 20130218
  17. BENZALIN [Concomitant]
     Active Substance: NITRAZEPAM
     Indication: SCHIZOPHRENIA, CATATONIC TYPE
     Dosage: 10 MG, UNK
     Route: 048
     Dates: start: 20130506
  18. CLOZARIL [Suspect]
     Active Substance: CLOZAPINE
     Dosage: 125 MG, UNK
     Route: 048
     Dates: start: 20130216, end: 20130218
  19. WYPAX [Concomitant]
     Active Substance: LORAZEPAM
     Indication: SCHIZOPHRENIA, CATATONIC TYPE
     Dosage: 1.5 MG, UNK
     Route: 048
  20. CLOZARIL [Suspect]
     Active Substance: CLOZAPINE
     Dosage: 75 MG, UNK
     Route: 048
     Dates: start: 20130212, end: 20130213
  21. CLOZARIL [Suspect]
     Active Substance: CLOZAPINE
     Dosage: 175 MG, UNK
     Route: 048
     Dates: start: 20130222, end: 20130224
  22. PYRETHIA//PROMETHAZINE HYDROCHLORIDE [Concomitant]
     Indication: SCHIZOPHRENIA, CATATONIC TYPE
     Dosage: 50 MG, UNK
     Route: 048
     Dates: end: 20130218
  23. CLOZARIL [Suspect]
     Active Substance: CLOZAPINE
     Indication: SCHIZOPHRENIA, CATATONIC TYPE
     Dosage: 12.5 MG, UNK
     Route: 048
     Dates: start: 20130205, end: 20130205
  24. CLOZARIL [Suspect]
     Active Substance: CLOZAPINE
     Dosage: 100 MG, UNK
     Route: 048
     Dates: start: 20130214, end: 20130215
  25. CLOZARIL [Suspect]
     Active Substance: CLOZAPINE
     Dosage: 250 MG, UNK
     Route: 048
     Dates: start: 20130307, end: 20130314
  26. CLOZARIL [Suspect]
     Active Substance: CLOZAPINE
     Dosage: 225 MG, UNK
     Route: 048
     Dates: start: 20130302, end: 20130306
  27. CLOZARIL [Suspect]
     Active Substance: CLOZAPINE
     Dosage: 300 MG, UNK
     Route: 048
     Dates: start: 20130519, end: 20130702
  28. AKINETON [Concomitant]
     Active Substance: BIPERIDEN HYDROCHLORIDE
     Indication: SCHIZOPHRENIA, CATATONIC TYPE
     Dosage: 1 MG, UNK
     Route: 048
     Dates: end: 20130216

REACTIONS (1)
  - Electrocardiogram QT prolonged [Recovered/Resolved]

NARRATIVE: CASE EVENT DATE: 20130404
